FAERS Safety Report 9189245 (Version 1)
Quarter: 2013Q1

REPORT INFORMATION
  Report Type: Spontaneous
  Country: US (occurrence: None)
  Receive Date: 20130321
  Receipt Date: 20130321
  Transmission Date: 20140127
  Serious: Yes (Hospitalization)
  Sender: FDA-Public Use
  Company Number: None

PATIENT
  Age: 59 Year
  Sex: Male

DRUGS (6)
  1. VOTRIENT [Suspect]
     Dosage: 800MG  DAILY  PO
     Route: 048
     Dates: start: 20121112, end: 20130320
  2. COUMADIN [Concomitant]
  3. DIFICID [Concomitant]
  4. GABAPENTIN [Concomitant]
  5. DILAUDID [Concomitant]
  6. KEPPRA [Concomitant]

REACTIONS (1)
  - Vomiting [None]
